FAERS Safety Report 10447540 (Version 1)
Quarter: 2014Q3

REPORT INFORMATION
  Report Type: Spontaneous
  Country: US (occurrence: US)
  Receive Date: 20140911
  Receipt Date: 20140911
  Transmission Date: 20150326
  Serious: No
  Sender: FDA-Public Use
  Company Number: US-BEH-2014042057

PATIENT
  Sex: Female

DRUGS (2)
  1. ANTIALLERGIC AGENTS, EXCL CORTICOSTEROIDS [Suspect]
     Active Substance: UNSPECIFIED INGREDIENT
  2. ZEMAIRA [Suspect]
     Active Substance: .ALPHA.1-PROTEINASE INHIBITOR HUMAN

REACTIONS (1)
  - Adverse reaction [Unknown]
